FAERS Safety Report 24972011 (Version 1)
Quarter: 2025Q1

REPORT INFORMATION
  Report Type: Spontaneous
  Country: US (occurrence: US)
  Receive Date: 20250214
  Receipt Date: 20250214
  Transmission Date: 20250409
  Serious: No
  Sender: GALDERMA
  Company Number: US-GALDERMA-US2025000173

PATIENT

DRUGS (6)
  1. PROACTIV MD ADAPALENE ACNE TREATMENT [Suspect]
     Active Substance: ADAPALENE
     Indication: Acne
     Route: 061
     Dates: start: 202412
  2. Proactiv MD Ultra Gentle Cleanser [Concomitant]
     Indication: Acne
     Route: 061
     Dates: start: 202412
  3. COSMETICS [Concomitant]
     Active Substance: COSMETICS
     Indication: Acne
     Route: 061
     Dates: start: 202412
  4. Proactiv Zits Happen Patches [Concomitant]
     Indication: Acne
     Route: 061
     Dates: start: 202412
  5. Proactiv Smooth + Bright Resurfacing Mask [Concomitant]
     Indication: Acne
     Route: 061
     Dates: start: 202412
  6. PROACTIV BLACKHEAD DISSOLVING [Concomitant]
     Active Substance: SALICYLIC ACID
     Indication: Acne
     Route: 061
     Dates: start: 202412

REACTIONS (4)
  - Skin irritation [Not Recovered/Not Resolved]
  - Acne [Not Recovered/Not Resolved]
  - Inappropriate schedule of product administration [Recovered/Resolved]
  - Overdose [Recovered/Resolved]

NARRATIVE: CASE EVENT DATE: 20241201
